FAERS Safety Report 23606941 (Version 1)
Quarter: 2024Q1

REPORT INFORMATION
  Report Type: Spontaneous
  Country: PT (occurrence: PT)
  Receive Date: 20240307
  Receipt Date: 20240307
  Transmission Date: 20240409
  Serious: Yes (Life-Threatening, Hospitalization, Other)
  Sender: FDA-Public Use
  Company Number: PT-EMA-DD-20240215-7482677-063622

PATIENT
  Age: 79 Year
  Sex: Female

DRUGS (2)
  1. FLUCLOXACILLIN [Interacting]
     Active Substance: FLUCLOXACILLIN
     Indication: Staphylococcal infection
     Dosage: 12 GRAM, QD (12 G/DAY)
     Route: 042
  2. ACETAMINOPHEN [Interacting]
     Active Substance: ACETAMINOPHEN
     Indication: Symptomatic treatment
     Dosage: 1 GRAM, TID (1 G EVERY 8 HOURS )
     Route: 065

REACTIONS (1)
  - Pyroglutamic acidosis [Recovered/Resolved]
